FAERS Safety Report 10271428 (Version 2)
Quarter: 2014Q4

REPORT INFORMATION
  Report Type: Spontaneous
  Country: US (occurrence: US)
  Receive Date: 20140701
  Receipt Date: 20141113
  Transmission Date: 20150528
  Serious: No
  Sender: FDA-Public Use
  Company Number: US-GILEAD-2014-0107060

PATIENT
  Age: 51 Year
  Sex: Female

DRUGS (3)
  1. RIOCIGUAT [Concomitant]
     Active Substance: RIOCIGUAT
  2. REMODULIN [Concomitant]
     Active Substance: TREPROSTINIL
  3. LETAIRIS [Suspect]
     Active Substance: AMBRISENTAN
     Indication: PULMONARY ARTERIAL HYPERTENSION
     Dosage: 10 MG, QD
     Route: 065
     Dates: start: 20130131

REACTIONS (2)
  - Gastrointestinal disorder [Unknown]
  - Abdominal pain [Unknown]
